FAERS Safety Report 19507032 (Version 2)
Quarter: 2021Q3

REPORT INFORMATION
  Report Type: Spontaneous
  Country: US (occurrence: US)
  Receive Date: 20210708
  Receipt Date: 20210823
  Transmission Date: 20211014
  Serious: No
  Sender: FDA-Public Use
  Company Number: US-ASTRAZENECA-2021A564639

PATIENT
  Age: 24007 Day
  Sex: Female
  Weight: 89.4 kg

DRUGS (1)
  1. BYDUREON BCISE [Suspect]
     Active Substance: EXENATIDE
     Indication: TYPE 2 DIABETES MELLITUS
     Route: 058
     Dates: start: 20210617

REACTIONS (5)
  - Wrong technique in device usage process [Unknown]
  - Nervousness [Unknown]
  - Agitation [Unknown]
  - Crying [Unknown]
  - Device leakage [Unknown]

NARRATIVE: CASE EVENT DATE: 20210617
